FAERS Safety Report 5398367-3 (Version None)
Quarter: 2007Q3

REPORT INFORMATION
  Report Type: 
  Country: None (occurrence: None)
  Receive Date: 20070726
  Receipt Date: 20070515
  Transmission Date: 20080115
  Serious: No
  Sender: FDA-Public Use
  Company Number: US-AMGEN-KDL225054

PATIENT
  Age: 79 Year
  Sex: Male

DRUGS (5)
  1. PROCRIT [Suspect]
     Indication: ANAEMIA OF MALIGNANT DISEASE
     Dates: start: 20070514
  2. UNSPECIFIED PAIN MEDICATION [Concomitant]
  3. UNSPECIFIED MEDICATION [Concomitant]
  4. FLOMAX [Concomitant]
  5. UNSPECIFIED ANTIHYPERTENSIVE AGENT [Concomitant]

REACTIONS (3)
  - DYSPNOEA [None]
  - EPISTAXIS [None]
  - HEADACHE [None]
